FAERS Safety Report 25332158 (Version 2)
Quarter: 2025Q2

REPORT INFORMATION
  Report Type: Report from Study
  Country: BR (occurrence: BR)
  Receive Date: 20250519
  Receipt Date: 20250519
  Transmission Date: 20250717
  Serious: Yes (Other)
  Sender: UCB
  Company Number: BR-UCBSA-2025028568

PATIENT
  Sex: Male

DRUGS (21)
  1. ROTIGOTINE [Suspect]
     Active Substance: ROTIGOTINE
     Indication: Parkinson^s disease
     Dosage: 4 MILLIGRAM, ONCE DAILY (QD)
     Route: 062
     Dates: start: 202411
  2. ROTIGOTINE [Suspect]
     Active Substance: ROTIGOTINE
     Dosage: 6 MILLIGRAM 1 AND A HALF PATCHES A DAY
     Route: 062
  3. BENSERAZIDE\LEVODOPA [Concomitant]
     Active Substance: BENSERAZIDE\LEVODOPA
     Indication: Product used for unknown indication
     Dates: start: 2022
  4. PISA [PIPERACILLIN SODIUM;TAZOBACTAM SODIUM] [Concomitant]
     Indication: Product used for unknown indication
     Dosage: 0.375 MILLIGRAM, ONCE DAILY (QD)
     Dates: start: 2023
  5. SYNTHROID [Concomitant]
     Active Substance: LEVOTHYROXINE SODIUM
     Indication: Product used for unknown indication
     Dosage: 100 MILLIGRAM, ONCE DAILY (QD)
  6. ENALAPRIL [Concomitant]
     Active Substance: ENALAPRIL
     Indication: Blood pressure measurement
     Dosage: 10 MILLIGRAM, 2X/DAY (BID)
     Dates: start: 2024
  7. ATROPINE [Concomitant]
     Active Substance: ATROPINE
     Route: 060
     Dates: start: 20241203
  8. BISOPROLOL FUMARATE [Concomitant]
     Active Substance: BISOPROLOL FUMARATE
     Indication: Product used for unknown indication
  9. BISOPROLOL FUMARATE [Concomitant]
     Active Substance: BISOPROLOL FUMARATE
  10. DIOSMIN [Concomitant]
     Active Substance: DIOSMIN
     Indication: Peripheral swelling
     Dates: start: 2023
  11. LINAGLIPTIN [Concomitant]
     Active Substance: LINAGLIPTIN
     Indication: Diabetes mellitus
     Dates: start: 2019
  12. MOTILIUM [Concomitant]
     Active Substance: DOMPERIDONE
     Indication: Nausea
     Dates: start: 2021
  13. ASPIRIN [Concomitant]
     Active Substance: ASPIRIN
     Indication: Anticoagulant therapy
     Dates: start: 2016
  14. CITONEURIN [CYANOCOBALAMIN;PYRIDOXINE HYDROCHLORIDE;THIAMINE HYDROCHLO [Concomitant]
     Indication: Product used for unknown indication
  15. ALLOPURINOL [Concomitant]
     Active Substance: ALLOPURINOL
     Indication: Blood uric acid
     Dates: start: 2016
  16. CRESTOR [Concomitant]
     Active Substance: ROSUVASTATIN CALCIUM
     Indication: Blood cholesterol increased
     Dates: start: 2024
  17. CYANOCOBALAMIN [Concomitant]
     Active Substance: CYANOCOBALAMIN
     Indication: Product used for unknown indication
     Dates: start: 2024
  18. VITAMIN D NOS [Concomitant]
     Active Substance: CHOLECALCIFEROL\ERGOCALCIFEROL
     Indication: Product used for unknown indication
     Dates: start: 2024
  19. GLIFAGE [Concomitant]
     Active Substance: METFORMIN HYDROCHLORIDE
     Indication: Diabetes mellitus
     Dates: start: 202502
  20. DAPAGLIFLOZIN [Concomitant]
     Active Substance: DAPAGLIFLOZIN
     Indication: Product used for unknown indication
     Dates: start: 202502
  21. LASIX [Concomitant]
     Active Substance: FUROSEMIDE
     Indication: Product used for unknown indication
     Dates: start: 2024

REACTIONS (4)
  - Parkinson^s disease [Unknown]
  - Product availability issue [Unknown]
  - Product dose omission issue [Unknown]
  - Off label use [Unknown]
